FAERS Safety Report 9148336 (Version 2)
Quarter: 2013Q3

REPORT INFORMATION
  Report Type: Spontaneous
  Country: GB (occurrence: GB)
  Receive Date: 20130308
  Receipt Date: 20130703
  Transmission Date: 20140515
  Serious: Yes (Death, Hospitalization, Disabling, Other)
  Sender: FDA-Public Use
  Company Number: GB-MPIJNJ-2013-01006

PATIENT
  Sex: 0

DRUGS (4)
  1. VELCADE [Suspect]
     Indication: PLASMA CELL MYELOMA
     Dosage: 1.3 MG/M2, CYCLIC
     Route: 065
     Dates: start: 20120814, end: 20120924
  2. DEXAMETHASONE [Concomitant]
     Indication: PLASMA CELL MYELOMA
     Dosage: 20 MG, UNK
     Route: 048
     Dates: start: 20120814, end: 20120924
  3. CYCLOPHOSPHAMIDE [Concomitant]
     Indication: PLASMA CELL MYELOMA
  4. THALIDOMIDE [Concomitant]
     Indication: PLASMA CELL MYELOMA

REACTIONS (4)
  - Plasmacytoma [Not Recovered/Not Resolved]
  - Nerve root compression [Recovered/Resolved]
  - Plasma cell myeloma [Fatal]
  - Drug ineffective [Unknown]
